FAERS Safety Report 18896002 (Version 2)
Quarter: 2021Q1

REPORT INFORMATION
  Report Type: Spontaneous
  Country: GB (occurrence: GB)
  Receive Date: 20210216
  Receipt Date: 20210325
  Transmission Date: 20210420
  Serious: Yes (Death, Hospitalization)
  Sender: FDA-Public Use
  Company Number: GB-DRREDDYS-GER/UKI/21/0131854

PATIENT
  Age: 84 Year
  Sex: Male

DRUGS (7)
  1. FUROSEMIDE. [Concomitant]
     Active Substance: FUROSEMIDE
     Dosage: UNK
     Route: 048
     Dates: start: 201710, end: 202002
  2. PREGABALIN. [Concomitant]
     Active Substance: PREGABALIN
     Indication: PAIN
     Route: 048
     Dates: start: 2017, end: 202002
  3. PREGABALIN. [Concomitant]
     Active Substance: PREGABALIN
     Indication: PAIN
     Dates: start: 201801
  4. FINASTERIDE. [Suspect]
     Active Substance: FINASTERIDE
     Indication: SPINAL DEFORMITY
     Dosage: UNK
     Route: 065
     Dates: start: 202002
  5. TRAMADOL HYDROCHLORIDE. [Concomitant]
     Active Substance: TRAMADOL HYDROCHLORIDE
     Indication: PAIN
     Dosage: UNK
     Route: 048
  6. FUROSEMIDE. [Concomitant]
     Active Substance: FUROSEMIDE
     Indication: OEDEMA PERIPHERAL
     Dosage: UNK
     Route: 048
     Dates: start: 2019
  7. MORPHINE [Concomitant]
     Active Substance: MORPHINE
     Indication: PAIN
     Dosage: UNK
     Route: 048

REACTIONS (14)
  - Balance disorder [Unknown]
  - Confusional state [Recovered/Resolved]
  - Agitation [Unknown]
  - Dysuria [Recovered/Resolved]
  - Oedema peripheral [Recovered/Resolved]
  - Chronic obstructive pulmonary disease [Fatal]
  - Pneumonia viral [Fatal]
  - COVID-19 [Fatal]
  - Catheter site haemorrhage [Unknown]
  - Fluid retention [Unknown]
  - Delirium [Unknown]
  - Feeling abnormal [Unknown]
  - Off label use [Unknown]
  - Urinary tract infection [Unknown]

NARRATIVE: CASE EVENT DATE: 202002
